FAERS Safety Report 10176881 (Version 2)
Quarter: 2014Q2

REPORT INFORMATION
  Report Type: Spontaneous
  Country: US (occurrence: US)
  Receive Date: 20140516
  Receipt Date: 20140522
  Transmission Date: 20141212
  Serious: No
  Sender: FDA-Public Use
  Company Number: US-SHIRE-US201402256

PATIENT
  Sex: Female
  Weight: 61.22 kg

DRUGS (5)
  1. LIALDA [Suspect]
     Indication: COLITIS ULCERATIVE
     Dosage: 1.2 G, 2X/DAY:BID
     Route: 048
     Dates: start: 2014
  2. CLARITIN                           /00917501/ [Concomitant]
     Indication: MULTIPLE ALLERGIES
     Dosage: UNK, 1X/DAY:QD
     Route: 065
  3. SUDAFED                            /00109602/ [Concomitant]
     Indication: MULTIPLE ALLERGIES
     Dosage: UNK, 1X/DAY:QD
     Route: 065
  4. FLORASTOR [Concomitant]
     Indication: PROBIOTIC THERAPY
     Dosage: UNK UNK, UNKNOWN
     Route: 065
  5. IRON [Concomitant]
     Indication: IRON DEFICIENCY
     Dosage: UNK, UNKNOWN
     Route: 065

REACTIONS (6)
  - Anxiety [Unknown]
  - Stress [Unknown]
  - Haematochezia [Not Recovered/Not Resolved]
  - Condition aggravated [Not Recovered/Not Resolved]
  - Inappropriate schedule of drug administration [Not Recovered/Not Resolved]
  - Off label use [Not Recovered/Not Resolved]
